FAERS Safety Report 9789212 (Version 1)
Quarter: 2013Q4

REPORT INFORMATION
  Report Type: Spontaneous
  Country: GB (occurrence: GB)
  Receive Date: 20131230
  Receipt Date: 20131230
  Transmission Date: 20140711
  Serious: Yes (Other)
  Sender: FDA-Public Use
  Company Number: GB-WATSON-2013-23476

PATIENT
  Age: 68 Year
  Sex: Male
  Weight: 135 kg

DRUGS (2)
  1. OMEPRAZOLE (UNKNOWN) [Suspect]
     Indication: GASTRITIS
     Dosage: 20 MG, UNKNOWN
     Route: 048
     Dates: start: 20131126, end: 20131128
  2. PARACETAMOL [Concomitant]
     Indication: ARTHRALGIA
     Dosage: 2 DF QID ONGOING FOR YEARS.
     Route: 048

REACTIONS (3)
  - Dyspnoea [Not Recovered/Not Resolved]
  - Wheezing [Not Recovered/Not Resolved]
  - Diarrhoea [Not Recovered/Not Resolved]
